FAERS Safety Report 6029887-6 (Version None)
Quarter: 2008Q4

REPORT INFORMATION
  Report Type: 
  Country: None (occurrence: None)
  Receive Date: 20081222
  Receipt Date: 20080929
  Transmission Date: 20090506
  Serious: No
  Sender: FDA-Public Use
  Company Number: US-WYE-H06180208

PATIENT
  Age: 66 Year
  Sex: Male

DRUGS (6)
  1. PRISTIQ [Suspect]
     Indication: DEPRESSION
     Dosage: 50 MG 1X PER 1DAY, ORAL
     Route: 048
     Dates: start: 20080601, end: 20080701
  2. PRISTIQ [Suspect]
     Indication: DEPRESSION
     Dosage: 50 MG 1X PER 1DAY, ORAL
     Route: 048
     Dates: start: 20080701
  3. PRISTIQ [Suspect]
     Dosage: 100 MG 1X PER 1DAY, ORAL
     Route: 048
     Dates: start: 20080701, end: 20080701
  4. AMBIEN [Concomitant]
  5. ZYPREXA [Concomitant]
  6. KLONOPIN [Concomitant]

REACTIONS (11)
  - ANXIETY [None]
  - DISORIENTATION [None]
  - DIZZINESS [None]
  - DRUG INEFFECTIVE [None]
  - DRY MOUTH [None]
  - HYPERHIDROSIS [None]
  - INSOMNIA [None]
  - LIBIDO DECREASED [None]
  - ORGASM ABNORMAL [None]
  - PALPITATIONS [None]
  - SOMNOLENCE [None]
